FAERS Safety Report 15429873 (Version 2)
Quarter: 2018Q4

REPORT INFORMATION
  Report Type: Spontaneous
  Country: US (occurrence: US)
  Receive Date: 20180926
  Receipt Date: 20181012
  Transmission Date: 20190204
  Serious: Yes (Other)
  Sender: FDA-Public Use
  Company Number: US-AKORN PHARMACEUTICALS-2018AKN01425

PATIENT
  Sex: Female
  Weight: 54.42 kg

DRUGS (3)
  1. MYORISAN [Suspect]
     Active Substance: ISOTRETINOIN
     Indication: ACNE
     Dosage: 40 MG, EVERY 48 HOURS
     Route: 048
     Dates: start: 201808, end: 201808
  2. MYORISAN [Suspect]
     Active Substance: ISOTRETINOIN
     Dosage: 40 MG, 1X/DAY
     Route: 048
     Dates: start: 201808, end: 20180827
  3. MYORISAN [Suspect]
     Active Substance: ISOTRETINOIN
     Indication: ACNE
     Dosage: UNK
     Dates: start: 20180813, end: 20180827

REACTIONS (8)
  - Suicidal ideation [Recovered/Resolved]
  - Depression [Recovered/Resolved]
  - Headache [Not Recovered/Not Resolved]
  - Mood altered [Recovered/Resolved]
  - Dizziness [Unknown]
  - Off label use [Recovered/Resolved]
  - Anxiety [Recovered/Resolved]
  - Decreased appetite [Unknown]

NARRATIVE: CASE EVENT DATE: 2018
